FAERS Safety Report 5663963-2 (Version None)
Quarter: 2008Q1

REPORT INFORMATION
  Report Type: 
  Country: None (occurrence: None)
  Receive Date: 20080314
  Receipt Date: 20080304
  Transmission Date: 20080703
  Serious: Yes (Death)
  Sender: FDA-Public Use
  Company Number: US-JNJFOC-20070206066

PATIENT
  Sex: Male
  Weight: 85.73 kg

DRUGS (3)
  1. RISPERDAL [Suspect]
     Indication: DRUG USE FOR UNKNOWN INDICATION
  2. PAXIL [Concomitant]
  3. BUSPIRONE HCL [Concomitant]

REACTIONS (2)
  - COMPLETED SUICIDE [None]
  - EXSANGUINATION [None]
